FAERS Safety Report 10917677 (Version 4)
Quarter: 2015Q3

REPORT INFORMATION
  Report Type: Spontaneous
  Country: US (occurrence: US)
  Receive Date: 20150316
  Receipt Date: 20150709
  Transmission Date: 20151125
  Serious: Yes (Death, Other)
  Sender: FDA-Public Use
  Company Number: US-GLAXOSMITHKLINE-US2015031157

PATIENT
  Age: 88 Year
  Sex: Male

DRUGS (1)
  1. LOVAZA [Suspect]
     Active Substance: OMEGA-3-ACID ETHYL ESTERS
     Indication: CARDIAC DISORDER
     Dosage: 2000 MG, BID
     Route: 048

REACTIONS (3)
  - Vision blurred [Not Recovered/Not Resolved]
  - Eye haemorrhage [Recovered/Resolved]
  - Death [Fatal]

NARRATIVE: CASE EVENT DATE: 20150531
